FAERS Safety Report 16821581 (Version 5)
Quarter: 2021Q2

REPORT INFORMATION
  Report Type: Spontaneous
  Country: US (occurrence: US)
  Receive Date: 20190918
  Receipt Date: 20210629
  Transmission Date: 20210716
  Serious: Yes (Other)
  Sender: FDA-Public Use
  Company Number: US-GILEAD-2019-0428471

PATIENT
  Age: 63 Year
  Sex: Male
  Weight: 88.9 kg

DRUGS (37)
  1. DESCOVY [Concomitant]
     Active Substance: EMTRICITABINE\TENOFOVIR ALAFENAMIDE FUMARATE
  2. CORTISONE [Concomitant]
     Active Substance: CORTISONE
  3. COMBIVIR [Concomitant]
     Active Substance: LAMIVUDINE\ZIDOVUDINE
  4. TIVICAY [Concomitant]
     Active Substance: DOLUTEGRAVIR SODIUM
  5. LORAZEPAM. [Concomitant]
     Active Substance: LORAZEPAM
  6. VALTREX [Concomitant]
     Active Substance: VALACYCLOVIR HYDROCHLORIDE
  7. CRESTOR [Concomitant]
     Active Substance: ROSUVASTATIN CALCIUM
  8. FLOMAX [Concomitant]
     Active Substance: TAMSULOSIN HYDROCHLORIDE
  9. TACROLIMUS. [Concomitant]
     Active Substance: TACROLIMUS
  10. VICODIN [Concomitant]
     Active Substance: ACETAMINOPHEN\HYDROCODONE BITARTRATE
  11. BIKTARVY [Concomitant]
     Active Substance: BICTEGRAVIR SODIUM\EMTRICITABINE\TENOFOVIR ALAFENAMIDE FUMARATE
  12. AMOXICILLIN. [Concomitant]
     Active Substance: AMOXICILLIN
  13. BACTRIM [Concomitant]
     Active Substance: SULFAMETHOXAZOLE\TRIMETHOPRIM
  14. FAMOTIDINE. [Concomitant]
     Active Substance: FAMOTIDINE
  15. CRIXIVAN [Concomitant]
     Active Substance: INDINAVIR SULFATE
  16. KALETRA [Concomitant]
     Active Substance: LOPINAVIR\RITONAVIR
  17. ACETAMINOPHEN. [Concomitant]
     Active Substance: ACETAMINOPHEN
  18. ASPIRIN [ACETYLSALICYLIC ACID] [Concomitant]
     Active Substance: ASPIRIN
  19. ATORVASTATIN [Concomitant]
     Active Substance: ATORVASTATIN
  20. TETRACYCLINE [Concomitant]
     Active Substance: TETRACYCLINE
  21. VIRACEPT [Concomitant]
     Active Substance: NELFINAVIR MESYLATE
  22. LEVITRA [Concomitant]
     Active Substance: VARDENAFIL HYDROCHLORIDE
  23. TRICOR [Concomitant]
     Active Substance: FENOFIBRATE
  24. ZOLPIDEM [Concomitant]
     Active Substance: ZOLPIDEM TARTRATE
  25. AZITHROMYCIN ANHYDROUS. [Concomitant]
     Active Substance: AZITHROMYCIN ANHYDROUS
  26. SILDENAFIL. [Concomitant]
     Active Substance: SILDENAFIL
  27. NORVIR [Concomitant]
     Active Substance: RITONAVIR
  28. RETROVIR [Concomitant]
     Active Substance: ZIDOVUDINE
  29. VIDEX [Concomitant]
     Active Substance: DIDANOSINE
  30. VIREAD [Suspect]
     Active Substance: TENOFOVIR DISOPROXIL FUMARATE
     Indication: HIV INFECTION
     Dosage: UNK
     Route: 048
     Dates: start: 20030117, end: 2006
  31. PENICILLIN NOS [Concomitant]
     Active Substance: PENICILLIN
  32. LOMOTIL [LOPERAMIDE HYDROCHLORIDE] [Concomitant]
     Active Substance: LOPERAMIDE HYDROCHLORIDE
  33. VIAGRA [Concomitant]
     Active Substance: SILDENAFIL CITRATE
  34. ATENOLOL. [Concomitant]
     Active Substance: ATENOLOL
  35. TRUVADA [Suspect]
     Active Substance: EMTRICITABINE\TENOFOVIR DISOPROXIL FUMARATE
     Indication: HIV INFECTION
     Dosage: UNK
     Route: 048
     Dates: start: 2006, end: 2016
  36. CELEBREX [Concomitant]
     Active Substance: CELECOXIB
  37. AMBIEN [Concomitant]
     Active Substance: ZOLPIDEM TARTRATE

REACTIONS (20)
  - Intervertebral disc protrusion [Not Recovered/Not Resolved]
  - Economic problem [Unknown]
  - Osteonecrosis [Not Recovered/Not Resolved]
  - Osteoarthritis [Not Recovered/Not Resolved]
  - Anhedonia [Unknown]
  - Intervertebral disc degeneration [Unknown]
  - Glomerular filtration rate decreased [Not Recovered/Not Resolved]
  - Anxiety [Unknown]
  - Renal failure [Not Recovered/Not Resolved]
  - Vertebral foraminal stenosis [Unknown]
  - Emotional distress [Unknown]
  - Hip arthroplasty [Not Recovered/Not Resolved]
  - Osteoporosis [Not Recovered/Not Resolved]
  - Tooth fracture [Not Recovered/Not Resolved]
  - Pain [Unknown]
  - Blood creatinine increased [Not Recovered/Not Resolved]
  - Chronic kidney disease [Not Recovered/Not Resolved]
  - Bone loss [Not Recovered/Not Resolved]
  - Spinal osteoarthritis [Not Recovered/Not Resolved]
  - Bone density decreased [Not Recovered/Not Resolved]

NARRATIVE: CASE EVENT DATE: 20141111
